FAERS Safety Report 16260968 (Version 1)
Quarter: 2019Q2

REPORT INFORMATION
  Report Type: Spontaneous
  Country: US (occurrence: US)
  Receive Date: 20190430
  Receipt Date: 20190430
  Transmission Date: 20190711
  Serious: Yes (Hospitalization, Disabling)
  Sender: FDA-Public Use
  Company Number: None

PATIENT
  Age: 19 Year
  Sex: Male
  Weight: 74.84 kg

DRUGS (2)
  1. KRATOM GOLD [Suspect]
     Active Substance: HERBALS\MITRAGYNINE
     Indication: SUBSTANCE USE
  2. KRATOM GOLD [Suspect]
     Active Substance: HERBALS\MITRAGYNINE
     Indication: SUBSTANCE USE
     Dates: start: 20180402, end: 20190427

REACTIONS (4)
  - Insomnia [None]
  - Withdrawal syndrome [None]
  - Seizure [None]
  - Drug dependence [None]

NARRATIVE: CASE EVENT DATE: 20190427
